FAERS Safety Report 9173956 (Version 1)
Quarter: 2013Q1

REPORT INFORMATION
  Report Type: Spontaneous
  Country: US (occurrence: None)
  Receive Date: 20130318
  Receipt Date: 20130318
  Transmission Date: 20140127
  Serious: Yes (Other)
  Sender: FDA-Public Use
  Company Number: 001494807A

PATIENT
  Age: 59 Year
  Sex: Female

DRUGS (4)
  1. MEANINGFUL BEAUTY NOS [Suspect]
     Dosage: ONCE DERMAL
     Dates: start: 20130210
  2. MT* SKIN BRIGHTENING DECOLLETE + NECK TREATMENT SPF15 [Suspect]
     Dosage: ONCE DERMAL
     Route: 023
     Dates: start: 20130210
  3. BENADRYL [Concomitant]
  4. EPIPEN [Concomitant]

REACTIONS (1)
  - Hypersensitivity [None]
